FAERS Safety Report 4456537-2 (Version None)
Quarter: 2004Q3

REPORT INFORMATION
  Report Type: 
  Country: None (occurrence: None)
  Receive Date: 20040921
  Receipt Date: 20040521
  Transmission Date: 20050211
  Serious: Yes (Life-Threatening, Hospitalization)
  Sender: FDA-Public Use
  Company Number: FLUV00304001415

PATIENT
  Age: 40 Year
  Sex: Female
  Weight: 48 kg

DRUGS (10)
  1. FLUVOXAMINE MALEATE [Suspect]
     Indication: DEPRESSION
     Dosage: SEE IMAGE
     Route: 048
     Dates: start: 20031119, end: 20031202
  2. FLUVOXAMINE MALEATE [Suspect]
     Indication: DEPRESSION
     Dosage: SEE IMAGE
     Route: 048
     Dates: start: 20031203, end: 20040205
  3. FLUVOXAMINE MALEATE [Suspect]
     Indication: DEPRESSION
     Dosage: SEE IMAGE
     Route: 048
     Dates: start: 20040206, end: 20040408
  4. DESYREL [Suspect]
     Indication: DEPRESSION
     Dosage: SEE IMAGE
     Route: 048
     Dates: start: 20031203, end: 20040122
  5. DESYREL [Suspect]
     Indication: DEPRESSION
     Dosage: SEE IMAGE
     Route: 048
     Dates: start: 20040123, end: 20040219
  6. DESYREL [Suspect]
     Indication: DEPRESSION
     Dosage: SEE IMAGE
     Route: 048
     Dates: start: 20040220, end: 20040408
  7. ESTAZOLAM [Concomitant]
  8. ETICALM (ETIZOLAM) [Concomitant]
  9. TOLEDOMIN (MILNACIPRAN HYDROCHLORIDE) [Concomitant]
  10. TRIDIOL 21 (LEVONORGESTREL W/ ETHINYLESTRADIOL) [Concomitant]

REACTIONS (6)
  - BLOOD POTASSIUM DECREASED [None]
  - CHEST PAIN [None]
  - HYPERVENTILATION [None]
  - LONG QT SYNDROME [None]
  - SYNCOPE [None]
  - TORSADE DE POINTES [None]
